FAERS Safety Report 14613925 (Version 1)
Quarter: 2018Q1

REPORT INFORMATION
  Report Type: Spontaneous
  Country: GB (occurrence: GB)
  Receive Date: 20180308
  Receipt Date: 20180308
  Transmission Date: 20180509
  Serious: Yes (Hospitalization, Other)
  Sender: FDA-Public Use
  Company Number: GB-ASTRAZENECA-2018SE14438

PATIENT
  Age: 52 Year
  Sex: Female
  Weight: 86.5 kg

DRUGS (3)
  1. METFORMIN [Concomitant]
     Active Substance: METFORMIN HYDROCHLORIDE
     Indication: DIABETES MELLITUS
     Dosage: 2.0MG UNKNOWN
     Route: 048
  2. AMLODIPINE [Concomitant]
     Active Substance: AMLODIPINE BESYLATE
     Indication: BLOOD PRESSURE ABNORMAL
     Dosage: 10.0MG UNKNOWN
     Route: 048
     Dates: start: 20160415
  3. FORXIGA [Suspect]
     Active Substance: DAPAGLIFLOZIN
     Indication: DIABETES MELLITUS
     Route: 048
     Dates: start: 20160415, end: 20160622

REACTIONS (3)
  - Peripheral ischaemia [Unknown]
  - Abscess limb [Recovered/Resolved with Sequelae]
  - Toe amputation [Unknown]

NARRATIVE: CASE EVENT DATE: 20160530
